FAERS Safety Report 24861423 (Version 1)
Quarter: 2025Q1

REPORT INFORMATION
  Report Type: Spontaneous
  Country: CN (occurrence: CN)
  Receive Date: 20250120
  Receipt Date: 20250120
  Transmission Date: 20250409
  Serious: Yes (Other)
  Sender: SANOFI AVENTIS
  Company Number: CN-SA-2025SA013784

PATIENT
  Age: 47 Year
  Sex: Female

DRUGS (5)
  1. ELOXATIN [Suspect]
     Active Substance: OXALIPLATIN
     Indication: Neoplasm malignant
     Route: 041
     Dates: start: 20250108, end: 20250108
  2. ELOXATIN [Suspect]
     Active Substance: OXALIPLATIN
     Indication: Colon cancer
  3. ELOXATIN [Suspect]
     Active Substance: OXALIPLATIN
     Indication: Rectal cancer
  4. ELOXATIN [Suspect]
     Active Substance: OXALIPLATIN
     Indication: Metastases to lung
  5. ELOXATIN [Suspect]
     Active Substance: OXALIPLATIN
     Indication: Malignant neoplasm of uterine adnexa

REACTIONS (2)
  - Rash pruritic [Recovering/Resolving]
  - Pruritus [Recovering/Resolving]

NARRATIVE: CASE EVENT DATE: 20250108
